FAERS Safety Report 22101296 (Version 1)
Quarter: 2023Q1

REPORT INFORMATION
  Report Type: Spontaneous
  Country: ES (occurrence: ES)
  Receive Date: 20230316
  Receipt Date: 20230316
  Transmission Date: 20230418
  Serious: Yes (Life-Threatening, Hospitalization, Other)
  Sender: FDA-Public Use
  Company Number: ES-ALKEM LABORATORIES LIMITED-ES-ALKEM-2023-02817

PATIENT
  Age: 64 Year
  Sex: Male

DRUGS (1)
  1. VALSARTAN [Suspect]
     Active Substance: VALSARTAN
     Indication: Product used for unknown indication
     Dosage: 80 MG/DAY
     Route: 065

REACTIONS (3)
  - Chronic kidney disease [Unknown]
  - Hypoalbuminaemia [Unknown]
  - Gastrointestinal disorder [Recovered/Resolved]
